FAERS Safety Report 7209296-4 (Version None)
Quarter: 2011Q1

REPORT INFORMATION
  Report Type: 
  Country: None (occurrence: None)
  Receive Date: 20110103
  Receipt Date: 20110103
  Transmission Date: 20110831
  Serious: Yes (Other)
  Sender: FDA-Public Use
  Company Number: None

PATIENT
  Age: 36 Year
  Sex: Male
  Weight: 70.3075 kg

DRUGS (1)
  1. FENTANYL [Suspect]
     Indication: PAIN
     Dosage: 100 MCG 1 OR 2 PER 48HR TRANSDERMAL
     Route: 062
     Dates: start: 20101220, end: 20101230

REACTIONS (5)
  - MALAISE [None]
  - DRUG INEFFECTIVE [None]
  - PRODUCT LABEL ISSUE [None]
  - DRUG WITHDRAWAL SYNDROME [None]
  - PRODUCT FORMULATION ISSUE [None]
